FAERS Safety Report 25960475 (Version 2)
Quarter: 2025Q4

REPORT INFORMATION
  Report Type: Spontaneous
  Country: US (occurrence: US)
  Receive Date: 20251027
  Receipt Date: 20251201
  Transmission Date: 20260118
  Serious: No
  Sender: SANDOZ
  Company Number: US-SANDOZ-SDZ2025US079040

PATIENT
  Age: 55 Year
  Sex: Female

DRUGS (2)
  1. COMBIPATCH [Suspect]
     Active Substance: ESTRADIOL\NORETHINDRONE ACETATE
     Indication: Off label use
     Dosage: UNK, 0.05/0.25 MG, ON MONDAYS AND FRIDAYS; TRANSDERMAL USE
     Route: 062
     Dates: start: 202510
  2. COMBIPATCH [Suspect]
     Active Substance: ESTRADIOL\NORETHINDRONE ACETATE
     Indication: Menopausal symptoms
     Dosage: UNK,  0.05/0.14 MG, ON MONDAYS AND FRIDAYS; TRANSDERMAL USE
     Route: 062
     Dates: start: 202506

REACTIONS (5)
  - Intermenstrual bleeding [Not Recovered/Not Resolved]
  - Product colour issue [Not Recovered/Not Resolved]
  - Product adhesion issue [Not Recovered/Not Resolved]
  - Intentional product use issue [Not Recovered/Not Resolved]
  - Off label use [Not Recovered/Not Resolved]

NARRATIVE: CASE EVENT DATE: 20250601
